FAERS Safety Report 10256432 (Version 1)
Quarter: 2014Q2

REPORT INFORMATION
  Report Type: Spontaneous
  Country: US (occurrence: US)
  Receive Date: 20140624
  Receipt Date: 20140624
  Transmission Date: 20141212
  Serious: No
  Sender: FDA-Public Use
  Company Number: US-ZOGENIX, INC.-2012ZX000180

PATIENT
  Sex: Male
  Weight: 90.8 kg

DRUGS (9)
  1. SUMAVEL DOSEPRO [Suspect]
     Indication: MIGRAINE
  2. STADOL [Concomitant]
     Indication: MIGRAINE
     Route: 045
  3. METFORMIN [Concomitant]
     Indication: DIABETES MELLITUS
     Route: 048
  4. BOTOX [Concomitant]
     Indication: MIGRAINE
  5. AMITRIPTYLINE [Concomitant]
     Indication: MIGRAINE
     Route: 048
  6. INDERAL [Concomitant]
     Indication: MIGRAINE
     Route: 048
  7. VICODIN [Concomitant]
     Indication: PAIN
     Route: 048
  8. FIORICET [Concomitant]
     Indication: MIGRAINE
     Route: 048
  9. BUTALBITAL [Concomitant]
     Indication: MIGRAINE
     Route: 048

REACTIONS (6)
  - Injection site scar [Recovered/Resolved]
  - Injection site pain [Recovered/Resolved]
  - Injection site haemorrhage [Recovered/Resolved]
  - Injection site bruising [Recovered/Resolved]
  - Drug effect incomplete [Recovered/Resolved]
  - Incorrect dose administered by device [Recovered/Resolved]
